FAERS Safety Report 15231199 (Version 2)
Quarter: 2018Q3

REPORT INFORMATION
  Report Type: Spontaneous
  Country: FR (occurrence: FR)
  Receive Date: 20180802
  Receipt Date: 20180802
  Transmission Date: 20181010
  Serious: Yes (Life-Threatening)
  Sender: FDA-Public Use
  Company Number: PHHY2018FR055179

PATIENT
  Age: 59 Year
  Sex: Female
  Weight: 90 kg

DRUGS (6)
  1. DOLIPRANE [Suspect]
     Active Substance: ACETAMINOPHEN
     Indication: SUICIDE ATTEMPT
     Dosage: 12 DF, UNK (TOTAL)
     Route: 048
     Dates: start: 20180506
  2. PREGABALIN. [Suspect]
     Active Substance: PREGABALIN
     Indication: SUICIDE ATTEMPT
     Dosage: 750 MG, UNK (TOTAL)
     Route: 048
     Dates: start: 20180506
  3. PRAMIPEXOLE SANDOZ [Suspect]
     Active Substance: PRAMIPEXOLE
     Indication: SUICIDE ATTEMPT
     Dosage: 6 DF, UNK (TOTAL)
     Route: 048
     Dates: start: 20180506
  4. TERCIAN [Suspect]
     Active Substance: CYAMEMAZINE
     Indication: SUICIDE ATTEMPT
     Dosage: 15 DF, QD
     Route: 048
     Dates: start: 20180506, end: 20180506
  5. VOLTARENE (DICLOFENAC SODIUM) [Suspect]
     Active Substance: DICLOFENAC SODIUM
     Indication: SUICIDE ATTEMPT
     Dosage: 6 DF, UNK (TOTAL)
     Route: 048
     Dates: start: 20180506, end: 20180506
  6. TERCIAN [Suspect]
     Active Substance: CYAMEMAZINE
     Indication: SUICIDE ATTEMPT
     Dosage: 1.2 G, UNK (TOTAL)
     Route: 048
     Dates: start: 20180506, end: 20180506

REACTIONS (2)
  - Poisoning deliberate [Recovered/Resolved]
  - Coma [Recovered/Resolved]

NARRATIVE: CASE EVENT DATE: 20180506
